FAERS Safety Report 8115877-6 (Version None)
Quarter: 2012Q1

REPORT INFORMATION
  Report Type: 
  Country: None (occurrence: None)
  Receive Date: 20120206
  Receipt Date: 20120201
  Transmission Date: 20120608
  Serious: Yes (Hospitalization)
  Sender: FDA-Public Use
  Company Number: US-BAYER-2012-010777

PATIENT
  Age: 83 Year
  Sex: Female
  Weight: 51.202 kg

DRUGS (20)
  1. PLAVIX [Suspect]
     Dosage: 75 MG, QD
     Route: 048
     Dates: start: 20081119, end: 20111111
  2. FAMOTIDINE [Concomitant]
     Indication: GASTROOESOPHAGEAL REFLUX DISEASE
  3. LORATADINE [Concomitant]
     Indication: SEASONAL ALLERGY
  4. TRAMADOL HCL [Concomitant]
     Indication: BACK PAIN
  5. MULTI-VITAMINS [Concomitant]
     Indication: SUPPLEMENTATION THERAPY
  6. ACETAMINOPHEN [Concomitant]
     Indication: MUSCULOSKELETAL CHEST PAIN
  7. ACETAMINOPHEN [Concomitant]
  8. NITROGLYCERIN [Concomitant]
     Indication: ANGINA PECTORIS
  9. ACETYLSALICYLIC ACID SRT [Suspect]
     Dosage: 81 MG, QD
     Route: 048
     Dates: start: 20080326
  10. ACETAMINOPHEN [Concomitant]
     Indication: BACK PAIN
  11. CALCIUM CARBONATE [Concomitant]
     Indication: SUPPLEMENTATION THERAPY
  12. CLONAZEPAM [Concomitant]
     Indication: INSOMNIA
  13. SENNA [Concomitant]
     Indication: CONSTIPATION
  14. CRIZOTINIB [Suspect]
     Indication: NON-SMALL CELL LUNG CANCER
     Dosage: 250 MG, BID
     Route: 048
     Dates: start: 20110525, end: 20111111
  15. DULCOLAX [Concomitant]
     Indication: CONSTIPATION
  16. CLONAZEPAM [Concomitant]
     Indication: ANXIETY
  17. ZETIA [Concomitant]
     Indication: DYSLIPIDAEMIA
  18. TRAMADOL HCL [Concomitant]
     Indication: MUSCULOSKELETAL CHEST PAIN
  19. TRAMADOL HCL [Concomitant]
  20. LAXATIVES [Concomitant]
     Indication: CONSTIPATION

REACTIONS (2)
  - GASTROINTESTINAL HAEMORRHAGE [None]
  - OESOPHAGITIS [None]
